FAERS Safety Report 11656394 (Version 1)
Quarter: 2015Q4

REPORT INFORMATION
  Report Type: Spontaneous
  Country: HR (occurrence: HR)
  Receive Date: 20151023
  Receipt Date: 20151023
  Transmission Date: 20160304
  Serious: Yes (Life-Threatening)
  Sender: FDA-Public Use
  Company Number: HR-TEVA-602081ISR

PATIENT
  Age: 76 Year
  Sex: Male
  Weight: 130 kg

DRUGS (8)
  1. ARES [Suspect]
     Active Substance: RABEPRAZOLE SODIUM
     Dosage: 20 MILLIGRAM DAILY; 20MG; 1,0,0
     Route: 048
  2. VOLTAREN [Suspect]
     Active Substance: DICLOFENAC SODIUM
     Dosage: 100 MILLIGRAM DAILY; 1,0,0
     Route: 048
  3. PROSCAR 5 MG [Concomitant]
     Indication: BENIGN PROSTATIC HYPERPLASIA
     Dosage: 5 MILLIGRAM DAILY; 5MG; 0,0,1
     Route: 048
  4. OMNIC [Concomitant]
     Active Substance: TAMSULOSIN HYDROCHLORIDE
     Indication: BENIGN PROSTATIC HYPERPLASIA
     Dosage: .4 MILLIGRAM DAILY; 0.4MG; 1,0,0
     Route: 048
  5. SORTIS [Suspect]
     Active Substance: ATORVASTATIN
     Indication: HYPERLIPIDAEMIA
     Dosage: 10 MILLIGRAM DAILY; 10MG; 0,0,1
     Route: 048
  6. CO PERINEVA [Concomitant]
     Indication: HYPERTENSION
     Dosage: 1 DOSAGE FORMS DAILY; 4/1.25MG
     Route: 048
  7. VESICARE [Concomitant]
     Active Substance: SOLIFENACIN SUCCINATE
     Dosage: 5 MILLIGRAM DAILY; 5MG; 1,0,0
     Route: 048
  8. ANDOL 100 [Concomitant]
     Dosage: 100 MILLIGRAM DAILY; 100MG; 0,1,0
     Route: 048

REACTIONS (2)
  - Acute kidney injury [Not Recovered/Not Resolved]
  - Rhabdomyolysis [Not Recovered/Not Resolved]

NARRATIVE: CASE EVENT DATE: 20150929
